FAERS Safety Report 12467528 (Version 1)
Quarter: 2016Q2

REPORT INFORMATION
  Report Type: Spontaneous
  Country: US (occurrence: None)
  Receive Date: 20160614
  Receipt Date: 20160614
  Transmission Date: 20160815
  Serious: Yes (Disabling)
  Sender: FDA-Public Use
  Company Number: None

PATIENT

DRUGS (3)
  1. NOVOLOG [Suspect]
     Active Substance: INSULIN ASPART
     Indication: PRODUCT USED FOR UNKNOWN INDICATION
     Dosage: SYRINGE 3 TIMES A DA DAY INJECTION
  2. LEVEMIR [Suspect]
     Active Substance: INSULIN DETEMIR
     Indication: PRODUCT USED FOR UNKNOWN INDICATION
  3. MULTI VITAMIN [Concomitant]
     Active Substance: VITAMINS

REACTIONS (6)
  - Confusional state [None]
  - Dysarthria [None]
  - Vision blurred [None]
  - Decreased activity [None]
  - Mood altered [None]
  - Dizziness [None]
